FAERS Safety Report 18783142 (Version 1)
Quarter: 2021Q1

REPORT INFORMATION
  Report Type: Spontaneous
  Country: JP (occurrence: JP)
  Receive Date: 20210125
  Receipt Date: 20210125
  Transmission Date: 20210419
  Serious: Yes (Hospitalization)
  Sender: FDA-Public Use
  Company Number: JP-JNJFOC-A-CH2019-189191

PATIENT
  Age: 4 Year
  Sex: Male
  Weight: 13.9 kg

DRUGS (12)
  1. UPTRAVI [Suspect]
     Active Substance: SELEXIPAG
     Dosage: 0.15 MG, BID
     Route: 048
     Dates: start: 20190717, end: 20190826
  2. FUROSEMIDE. [Concomitant]
     Active Substance: FUROSEMIDE
     Dosage: 20 MG, QD
  3. ALDACTONE A [Concomitant]
     Active Substance: SPIRONOLACTONE
     Dosage: 20 MG, QD
  4. UPTRAVI [Suspect]
     Active Substance: SELEXIPAG
     Indication: PULMONARY ARTERIAL HYPERTENSION
     Dosage: 0.05 MG, BID
     Route: 048
     Dates: start: 20190313, end: 20190318
  5. UPTRAVI [Suspect]
     Active Substance: SELEXIPAG
     Dosage: 0.1 MG, BID
     Route: 048
     Dates: start: 20190619, end: 20190717
  6. UPTRAVI [Suspect]
     Active Substance: SELEXIPAG
     Dosage: 0.2 MG, BID
     Route: 048
     Dates: start: 20190826
  7. ENALART [Concomitant]
     Active Substance: ENALAPRIL MALEATE
     Dosage: 0.6 MG, QD
  8. WARFARIN POTASSIUM [Concomitant]
     Active Substance: WARFARIN POTASSIUM
     Dosage: 1.1 MG, QD
  9. ADCIRCA [Concomitant]
     Active Substance: TADALAFIL
     Indication: PULMONARY ARTERIAL HYPERTENSION
     Dosage: 40 MG, QD
  10. CARVEDILOL. [Concomitant]
     Active Substance: CARVEDILOL
     Dosage: 4 MG, QD
  11. UPTRAVI [Suspect]
     Active Substance: SELEXIPAG
     Dosage: 0.05 MG, BID
     Route: 048
     Dates: start: 20190522, end: 20190619
  12. OPSUMIT [Concomitant]
     Active Substance: MACITENTAN
     Indication: PULMONARY ARTERIAL HYPERTENSION
     Dosage: 10 MG, QD

REACTIONS (8)
  - Streptococcus test positive [Unknown]
  - Product use issue [Unknown]
  - Purpura [Recovered/Resolved]
  - Protein-losing gastroenteropathy [Not Recovered/Not Resolved]
  - Immunoglobulins decreased [Not Recovered/Not Resolved]
  - Scrotal swelling [Recovered/Resolved]
  - Arthralgia [Recovered/Resolved]
  - Off label use [Unknown]

NARRATIVE: CASE EVENT DATE: 20190317
